FAERS Safety Report 14102992 (Version 4)
Quarter: 2017Q4

REPORT INFORMATION
  Report Type: Report from Study
  Country: US (occurrence: US)
  Receive Date: 20171018
  Receipt Date: 20171228
  Transmission Date: 20180321
  Serious: Yes (Death, Hospitalization)
  Sender: FDA-Public Use
  Company Number: US-JNJFOC-20170925693

PATIENT
  Age: 92 Year
  Sex: Female

DRUGS (24)
  1. ALBUTEROL. [Concomitant]
     Active Substance: ALBUTEROL
  2. FLOMAX [Concomitant]
     Active Substance: TAMSULOSIN HYDROCHLORIDE
  3. SIMVASTATIN. [Concomitant]
     Active Substance: SIMVASTATIN
  4. FLUTICASONE PROPIONATE. [Concomitant]
     Active Substance: FLUTICASONE PROPIONATE
  5. VITAMIN D [Concomitant]
     Active Substance: CHOLECALCIFEROL
  6. POTASSIUM [Concomitant]
     Active Substance: POTASSIUM
  7. CRANBERRY. [Concomitant]
     Active Substance: CRANBERRY
  8. OLOPATADINE. [Concomitant]
     Active Substance: OLOPATADINE
  9. AMLODIPINE [Concomitant]
     Active Substance: AMLODIPINE BESYLATE
  10. LASIX [Concomitant]
     Active Substance: FUROSEMIDE
  11. IMBRUVICA [Suspect]
     Active Substance: IBRUTINIB
     Indication: CHRONIC LYMPHOCYTIC LEUKAEMIA
     Route: 048
     Dates: start: 20170912, end: 20170929
  12. MULTIVITAMINS [Concomitant]
     Active Substance: VITAMINS
  13. FISH OIL [Concomitant]
     Active Substance: FISH OIL
  14. CLARITIN [Concomitant]
     Active Substance: LORATADINE
  15. GLUCOSAMINE [Concomitant]
     Active Substance: GLUCOSAMINE
  16. NITROGLYCERIN. [Concomitant]
     Active Substance: NITROGLYCERIN
  17. ASPIRIN. [Concomitant]
     Active Substance: ASPIRIN
  18. LISINOPRIL. [Concomitant]
     Active Substance: LISINOPRIL
  19. TRAMADOL. [Concomitant]
     Active Substance: TRAMADOL
  20. METFORMIN [Concomitant]
     Active Substance: METFORMIN HYDROCHLORIDE
  21. IMBRUVICA [Suspect]
     Active Substance: IBRUTINIB
     Indication: CHRONIC LYMPHOCYTIC LEUKAEMIA
     Route: 048
     Dates: start: 20170905
  22. ATORVASTATIN [Concomitant]
     Active Substance: ATORVASTATIN
  23. PRIMIDONE. [Concomitant]
     Active Substance: PRIMIDONE
  24. AMLODIPINE W/ATORVASTATIN [Concomitant]
     Active Substance: AMLODIPINE\ATORVASTATIN

REACTIONS (11)
  - Fatigue [Unknown]
  - Hypoxia [Unknown]
  - Micturition urgency [Not Recovered/Not Resolved]
  - Abdominal pain [Unknown]
  - Abdominal discomfort [Not Recovered/Not Resolved]
  - Disease progression [Fatal]
  - Haemothorax [Unknown]
  - Off label use [Unknown]
  - Pneumonia [Unknown]
  - Cystitis [Unknown]
  - Incorrect dose administered [Unknown]

NARRATIVE: CASE EVENT DATE: 201709
